FAERS Safety Report 12465894 (Version 2)
Quarter: 2016Q3

REPORT INFORMATION
  Report Type: Spontaneous
  Country: US (occurrence: US)
  Receive Date: 20160614
  Receipt Date: 20160726
  Transmission Date: 20161109
  Serious: Yes (Other)
  Sender: FDA-Public Use
  Company Number: US-JNJFOC-20160607160

PATIENT

DRUGS (6)
  1. COMPLERA [Concomitant]
     Active Substance: EMTRICITABINE\RILPIVIRINE HYDROCHLORIDE\TENOFOVIR DISOPROXIL FUMARATE
     Indication: HIV INFECTION
     Route: 065
  2. RIBAVARIN [Suspect]
     Active Substance: RIBAVIRIN
     Indication: CHRONIC HEPATITIS C
     Route: 065
  3. SIMEPREVIR [Suspect]
     Active Substance: SIMEPREVIR
     Indication: CHRONIC HEPATITIS C
     Route: 065
  4. TENOFOVIR [Concomitant]
     Active Substance: TENOFOVIR
     Route: 065
  5. ABACAVIR. [Concomitant]
     Active Substance: ABACAVIR
     Route: 065
  6. SOFOSBUVIR [Suspect]
     Active Substance: SOFOSBUVIR
     Indication: CHRONIC HEPATITIS C
     Route: 065

REACTIONS (13)
  - Haemoglobin decreased [Unknown]
  - Blood bilirubin increased [Unknown]
  - Vomiting [Unknown]
  - Lip swelling [Unknown]
  - Arthralgia [Unknown]
  - Insomnia [Unknown]
  - Pruritus [Unknown]
  - Fatigue [Unknown]
  - Abdominal pain [Unknown]
  - Anxiety [Unknown]
  - Hepatitis C [Unknown]
  - Decreased appetite [Unknown]
  - Rash [Unknown]
